FAERS Safety Report 19752364 (Version 1)
Quarter: 2021Q3

REPORT INFORMATION
  Report Type: Spontaneous
  Country: US (occurrence: US)
  Receive Date: 20210827
  Receipt Date: 20210827
  Transmission Date: 20211014
  Serious: No
  Sender: FDA-Public Use
  Company Number: US-ESPERIONTHERAPEUTICS-2021USA01615

PATIENT
  Sex: Female

DRUGS (2)
  1. EZETIMIBE. [Concomitant]
     Active Substance: EZETIMIBE
     Dosage: UNK
     Route: 065
  2. NEXLETOL [Suspect]
     Active Substance: BEMPEDOIC ACID
     Indication: PRODUCT USED FOR UNKNOWN INDICATION
     Dosage: 180 MILLIGRAM
     Route: 065

REACTIONS (1)
  - Abdominal pain upper [Unknown]
